FAERS Safety Report 8452817 (Version 2)
Quarter: 2013Q2

REPORT INFORMATION
  Report Type: Spontaneous
  Country: US (occurrence: None)
  Receive Date: 20120221
  Receipt Date: 20120518
  Transmission Date: 20140414
  Serious: No
  Sender: FDA-Public Use
  Company Number: 1000026197

PATIENT
  Age: 59 Year
  Sex: Female

DRUGS (3)
  1. VIIBRYD [Suspect]
     Indication: DEPRESSION
     Dosage: 5 MG (5 MG, 1 IN 1 D), ORAL
     Route: 048
     Dates: start: 20111210
  2. TRAZODONE [Concomitant]
  3. DIOVAN (VALSARTAN) (VALSARTAN) [Concomitant]

REACTIONS (5)
  - DIARRHOEA [None]
  - NAUSEA [None]
  - INSOMNIA [None]
  - PSYCHOMOTOR HYPERACTIVITY [None]
  - Hypertension [None]
